FAERS Safety Report 7055300-6 (Version None)
Quarter: 2010Q4

REPORT INFORMATION
  Report Type: 
  Country: None (occurrence: None)
  Receive Date: 20101021
  Receipt Date: 20101018
  Transmission Date: 20110411
  Serious: Yes (Death, Life-Threatening, Hospitalization)
  Sender: FDA-Public Use
  Company Number: US-SANOFI-AVENTIS-2010SA020147

PATIENT
  Age: 61 Year
  Sex: Male

DRUGS (6)
  1. OXALIPLATIN [Suspect]
     Indication: RECTAL CANCER
     Dosage: OVER TWO HOURS ON DAYS 1, 8, 15, 22 AND 29
     Route: 042
     Dates: start: 20100120, end: 20100120
  2. OXALIPLATIN [Suspect]
     Dosage: OVER TWO HOURS ON DAYS 1, 8, 15, 22 AND 29
     Route: 042
     Dates: start: 20100203, end: 20100203
  3. BEVACIZUMAB [Suspect]
     Indication: RECTAL CANCER
     Dosage: OVER 30-90 MINUTES ON DAYS 1, 15, 29
     Route: 042
     Dates: start: 20100120, end: 20100120
  4. BEVACIZUMAB [Suspect]
     Dosage: OVER 30-90 MINUTES ON DAYS 1, 15, 29
     Route: 042
     Dates: start: 20100203, end: 20100203
  5. CAPECITABINE [Suspect]
     Indication: RECTAL CANCER
     Dosage: EVERY TWELVE HOURS FIVE DAYS PER WEEK
     Route: 048
     Dates: start: 20100120, end: 20100217
  6. THERAPEUTIC RADIOPHARMACEUTICALS [Concomitant]

REACTIONS (14)
  - ACIDOSIS [None]
  - ASPIRATION [None]
  - CARDIAC ARREST [None]
  - DIARRHOEA [None]
  - DISSEMINATED INTRAVASCULAR COAGULATION [None]
  - HAEMOGLOBIN [None]
  - HYPOKALAEMIA [None]
  - HYPONATRAEMIA [None]
  - HYPOTHERMIA [None]
  - ILEUS [None]
  - NAUSEA [None]
  - PLATELET COUNT [None]
  - SMALL INTESTINAL OBSTRUCTION [None]
  - VOMITING [None]
